FAERS Safety Report 8854216 (Version 1)
Quarter: 2012Q4

REPORT INFORMATION
  Report Type: Spontaneous
  Country: US (occurrence: None)
  Receive Date: 20121022
  Receipt Date: 20121022
  Transmission Date: 20130627
  Serious: No
  Sender: FDA-Public Use
  Company Number: None

PATIENT
  Sex: Female

DRUGS (2)
  1. TYKERB [Suspect]
     Indication: BREAST CANCER METASTATIC
     Route: 048
     Dates: start: 20120827, end: 201210
  2. TYKERB [Suspect]
     Indication: METASTASES TO LUNG
     Route: 048
     Dates: start: 20120827, end: 201210

REACTIONS (3)
  - Rash generalised [None]
  - Candidiasis [None]
  - Diarrhoea [None]
